FAERS Safety Report 25541960 (Version 1)
Quarter: 2025Q3

REPORT INFORMATION
  Report Type: Spontaneous
  Country: US (occurrence: US)
  Receive Date: 20250711
  Receipt Date: 20250711
  Transmission Date: 20251021
  Serious: Yes (Other)
  Sender: UNICHEM
  Company Number: US-UNICHEM LABORATORIES LIMITED-UNI-2025-US-002673

PATIENT

DRUGS (2)
  1. BACLOFEN [Suspect]
     Active Substance: BACLOFEN
     Indication: Muscle spasticity
     Route: 048
  2. BACLOFEN [Suspect]
     Active Substance: BACLOFEN
     Route: 048

REACTIONS (2)
  - Altered state of consciousness [Recovered/Resolved]
  - Dizziness [Recovered/Resolved]
